FAERS Safety Report 18501435 (Version 3)
Quarter: 2020Q4

REPORT INFORMATION
  Report Type: Spontaneous
  Country: AU (occurrence: AU)
  Receive Date: 20201113
  Receipt Date: 20201209
  Transmission Date: 20210114
  Serious: Yes (Hospitalization, Other)
  Sender: FDA-Public Use
  Company Number: NVSC2020AU294963

PATIENT
  Sex: Female

DRUGS (1)
  1. CICLOSPORIN [Suspect]
     Active Substance: CYCLOSPORINE
     Indication: CHRONIC GRAFT VERSUS HOST DISEASE
     Dosage: 150 MG, BID
     Route: 065

REACTIONS (5)
  - Chronic graft versus host disease [Unknown]
  - Scleroderma [Unknown]
  - Therapeutic product effect incomplete [Unknown]
  - Hypokinesia [Unknown]
  - Condition aggravated [Unknown]
